FAERS Safety Report 10930382 (Version 1)
Quarter: 2015Q1

REPORT INFORMATION
  Report Type: Spontaneous
  Country: JP (occurrence: JP)
  Receive Date: 20150319
  Receipt Date: 20150319
  Transmission Date: 20150721
  Serious: Yes (Hospitalization, Other)
  Sender: FDA-Public Use
  Company Number: JP-ASTRAZENECA-2014SE47241

PATIENT
  Age: 21719 Day
  Sex: Female
  Weight: 59 kg

DRUGS (34)
  1. NORVASC [Concomitant]
     Active Substance: AMLODIPINE BESYLATE
  2. CELECOX [Concomitant]
     Active Substance: CELECOXIB
  3. RINLAXER [Concomitant]
     Active Substance: CHLORPHENESIN CARBAMATE
  4. ATELEC [Concomitant]
     Active Substance: CILNIDIPINE
  5. KAMISHOYOSAN [Concomitant]
  6. GOODMIN [Concomitant]
     Active Substance: BROTIZOLAM
  7. TAKEPRON [Concomitant]
     Active Substance: LANSOPRAZOLE
  8. REFLEX [Concomitant]
     Active Substance: MIRTAZAPINE
  9. SEROQUEL [Suspect]
     Active Substance: QUETIAPINE FUMARATE
     Indication: DELUSIONAL DISORDER, UNSPECIFIED TYPE
     Route: 048
     Dates: start: 20060410, end: 20071017
  10. SEROQUEL [Suspect]
     Active Substance: QUETIAPINE FUMARATE
     Indication: DELUSIONAL DISORDER, UNSPECIFIED TYPE
     Route: 048
     Dates: start: 20120802, end: 20130403
  11. MOTONALIN [Concomitant]
     Active Substance: TIZANIDINE HYDROCHLORIDE
  12. RIVOTRIL [Concomitant]
     Active Substance: CLONAZEPAM
  13. LOXONIN [Concomitant]
     Active Substance: LOXOPROFEN SODIUM
  14. BENZALIN [Concomitant]
     Active Substance: NITRAZEPAM
  15. MIYA-BM [Concomitant]
     Active Substance: CLOSTRIDIUM BUTYRICUM SPORES STRAIN M-55
  16. ULCERLMIN [Concomitant]
     Active Substance: SUCRALFATE
  17. MINOMYCIN [Concomitant]
     Active Substance: MINOCYCLINE HYDROCHLORIDE
  18. EBRANTIL [Concomitant]
     Active Substance: URAPIDIL
  19. MARZULENE-S [Concomitant]
     Active Substance: SODIUM GUALENATE
  20. SEROQUEL [Suspect]
     Active Substance: QUETIAPINE FUMARATE
     Indication: DELUSIONAL DISORDER, UNSPECIFIED TYPE
     Route: 048
     Dates: end: 20060409
  21. SEROQUEL [Suspect]
     Active Substance: QUETIAPINE FUMARATE
     Indication: DELUSIONAL DISORDER, UNSPECIFIED TYPE
     Route: 048
     Dates: start: 20120315, end: 20120801
  22. MUCOSTA [Concomitant]
     Active Substance: REBAMIPIDE
  23. ALLOID [Concomitant]
  24. MICARDIS [Concomitant]
     Active Substance: TELMISARTAN
  25. ROZEREM [Concomitant]
     Active Substance: RAMELTEON
  26. NEUROTROPIN [Concomitant]
     Active Substance: NEUROTROPIN
  27. OLMETEC [Concomitant]
     Active Substance: OLMESARTAN MEDOXOMIL
  28. SEROQUEL [Suspect]
     Active Substance: QUETIAPINE FUMARATE
     Indication: DELUSIONAL DISORDER, UNSPECIFIED TYPE
     Route: 048
     Dates: start: 20071220, end: 20110714
  29. MAGMITT [Concomitant]
     Active Substance: MAGNESIUM OXIDE
  30. OPALMON [Concomitant]
     Active Substance: LIMAPROST
  31. SEROQUEL [Suspect]
     Active Substance: QUETIAPINE FUMARATE
     Indication: DELUSIONAL DISORDER, UNSPECIFIED TYPE
     Route: 048
     Dates: start: 20071018, end: 20071219
  32. ZYPREXA [Suspect]
     Active Substance: OLANZAPINE
     Indication: DELUSIONAL DISORDER, UNSPECIFIED TYPE
     Route: 048
     Dates: start: 20110714, end: 20130403
  33. GLACTIV [Concomitant]
     Active Substance: SITAGLIPTIN
  34. VITAMEDIN [Concomitant]
     Active Substance: CYANOCOBALAMIN\PYRIDOXINE HYDROCHLORIDE\THIAMINE

REACTIONS (3)
  - Diabetes mellitus [Recovering/Resolving]
  - Hepatic function abnormal [Recovered/Resolved]
  - Off label use [Unknown]

NARRATIVE: CASE EVENT DATE: 20050729
